FAERS Safety Report 19954683 (Version 1)
Quarter: 2021Q4

REPORT INFORMATION
  Report Type: Spontaneous
  Country: JP (occurrence: JP)
  Receive Date: 20211014
  Receipt Date: 20211014
  Transmission Date: 20220303
  Serious: Yes (Other)
  Sender: FDA-Public Use
  Company Number: 2021A765677

PATIENT
  Age: 55 Year
  Sex: Female

DRUGS (5)
  1. TAGRISSO [Suspect]
     Active Substance: OSIMERTINIB
     Indication: Non-small cell lung cancer
     Route: 048
  2. TAGRISSO [Suspect]
     Active Substance: OSIMERTINIB
     Indication: Non-small cell lung cancer
     Route: 048
  3. CHONDROITIN SULFATE (BOVINE) [Concomitant]
     Active Substance: CHONDROITIN SULFATE (BOVINE)
     Indication: Chemotherapy side effect prophylaxis
     Dosage: DOSE UNKNOWN
     Route: 062
  4. HACHIAZULE [Concomitant]
     Indication: Chemotherapy side effect prophylaxis
     Dosage: DOSE UNKNOWN
     Route: 049
  5. UNSPECIFIED INGREDIENT [Concomitant]
     Active Substance: UNSPECIFIED INGREDIENT
     Indication: Chemotherapy side effect prophylaxis
     Dosage: DOSE UNKNOWN
     Route: 065

REACTIONS (6)
  - Rash [Unknown]
  - Hyperkalaemia [Recovered/Resolved]
  - Aspartate aminotransferase increased [Unknown]
  - Hypokalaemia [Unknown]
  - Electrocardiogram QT prolonged [Unknown]
  - Diarrhoea [Unknown]
